FAERS Safety Report 4941530-3 (Version None)
Quarter: 2006Q1

REPORT INFORMATION
  Report Type: 
  Country: None (occurrence: None)
  Receive Date: 20060308
  Receipt Date: 20060224
  Transmission Date: 20060701
  Serious: Yes (Other)
  Sender: FDA-Public Use
  Company Number: 2006030204

PATIENT
  Age: 62 Year
  Sex: Female

DRUGS (1)
  1. LIPITOR [Suspect]
     Indication: HYPERLIPIDAEMIA
     Dosage: 5 MG (DAILY), ORAL
     Route: 048
     Dates: start: 20060211, end: 20060218

REACTIONS (3)
  - MALAISE [None]
  - MYALGIA [None]
  - VISUAL FIELD DEFECT [None]
